FAERS Safety Report 6871544-8 (Version None)
Quarter: 2010Q3

REPORT INFORMATION
  Report Type: 
  Country: None (occurrence: None)
  Receive Date: 20100723
  Receipt Date: 20100713
  Transmission Date: 20110219
  Serious: Yes (Other)
  Sender: FDA-Public Use
  Company Number: PHHY2010US46182

PATIENT
  Sex: Female

DRUGS (3)
  1. EXTAVIA [Suspect]
     Indication: MULTIPLE SCLEROSIS
     Dosage: 0.25 MG, QOD
     Route: 058
     Dates: start: 20100618
  2. ACETAMINOPHEN [Concomitant]
  3. JANUVIA [Concomitant]
     Indication: DIABETES MELLITUS

REACTIONS (6)
  - GLYCOSYLATED HAEMOGLOBIN INCREASED [None]
  - INJECTION SITE MASS [None]
  - INJECTION SITE PAIN [None]
  - LIVER FUNCTION TEST ABNORMAL [None]
  - ROTATOR CUFF SYNDROME [None]
  - WEIGHT INCREASED [None]
